FAERS Safety Report 14685144 (Version 1)
Quarter: 2018Q1

REPORT INFORMATION
  Report Type: Spontaneous
  Country: US (occurrence: US)
  Receive Date: 20180327
  Receipt Date: 20180327
  Transmission Date: 20180509
  Serious: No
  Sender: FDA-Public Use
  Company Number: US-BAYER-2018-058933

PATIENT

DRUGS (3)
  1. ALEVE [Suspect]
     Active Substance: NAPROXEN SODIUM
     Dosage: 1 DF, BID
  2. PRED [Suspect]
     Active Substance: PREDNISONE
     Dosage: 20 MG, QD
  3. TRAMADOL. [Suspect]
     Active Substance: TRAMADOL
     Dosage: 5 MG, UNK

REACTIONS (1)
  - Unevaluable event [None]
